FAERS Safety Report 25669204 (Version 1)
Quarter: 2025Q3

REPORT INFORMATION
  Report Type: Spontaneous
  Country: EU (occurrence: EU)
  Receive Date: 20250812
  Receipt Date: 20250812
  Transmission Date: 20251020
  Serious: Yes (Hospitalization)
  Sender: ROCHE
  Company Number: None

PATIENT
  Age: 44 Year
  Sex: Male

DRUGS (8)
  1. MYCOPHENOLIC ACID [Suspect]
     Active Substance: MYCOPHENOLIC ACID
     Indication: Secondary immunodeficiency
     Dosage: 1440MG PER DAY
     Route: 065
  2. RIFABUTIN [Suspect]
     Active Substance: RIFABUTIN
     Indication: Product used for unknown indication
     Route: 065
  3. PREDNISONE [Suspect]
     Active Substance: PREDNISONE
     Indication: Secondary immunodeficiency
     Dosage: 10MG PER DAY
     Route: 065
  4. CLARITHROMYCIN [Suspect]
     Active Substance: CLARITHROMYCIN
     Indication: Product used for unknown indication
     Route: 065
  5. ETHAMBUTOL [Suspect]
     Active Substance: ETHAMBUTOL HYDROCHLORIDE
     Indication: Product used for unknown indication
     Route: 065
  6. MOXIFLOXACIN [Suspect]
     Active Substance: MOXIFLOXACIN
     Indication: Product used for unknown indication
     Route: 065
  7. TACROLIMUS [Suspect]
     Active Substance: TACROLIMUS
     Indication: Secondary immunodeficiency
     Route: 065
  8. CYCLOSPORINE [Concomitant]
     Active Substance: CYCLOSPORINE
     Indication: Immunosuppression

REACTIONS (12)
  - Pyrexia [Recovered/Resolved]
  - Pulmonary granuloma [Recovered/Resolved]
  - Intestinal mucosal hypertrophy [Unknown]
  - Drug ineffective [Unknown]
  - Lymphadenopathy [Unknown]
  - Atypical mycobacterial pneumonia [Recovering/Resolving]
  - Necrosis [Unknown]
  - Cough [Recovered/Resolved]
  - Intestinal obstruction [Unknown]
  - Pneumonia [Recovering/Resolving]
  - Sputum culture positive [Unknown]
  - Weight decreased [Recovered/Resolved]
